FAERS Safety Report 4656654-8 (Version None)
Quarter: 2005Q2

REPORT INFORMATION
  Report Type: 
  Country: None (occurrence: None)
  Receive Date: 20050331
  Receipt Date: 20041008
  Transmission Date: 20051028
  Serious: No
  Sender: FDA-Public Use
  Company Number: US094833

PATIENT

DRUGS (4)
  1. NEULASTA [Suspect]
     Indication: CHEMOTHERAPY
     Dosage: 6 MG
  2. CARBOPLATIN [Concomitant]
  3. PACLITAXEL [Concomitant]
  4. DEXAMETHASONE [Concomitant]

REACTIONS (2)
  - LOCALISED OEDEMA [None]
  - OROPHARYNGEAL SWELLING [None]
